FAERS Safety Report 8862299 (Version 1)
Quarter: 2012Q4

REPORT INFORMATION
  Report Type: Report from Study
  Country: CA (occurrence: CA)
  Receive Date: 20121026
  Receipt Date: 20121026
  Transmission Date: 20130627
  Serious: Yes (Hospitalization, Other)
  Sender: FDA-Public Use
  Company Number: CA-JNJFOC-20121008900

PATIENT
  Age: 55 Year
  Sex: Male
  Weight: 77 kg

DRUGS (7)
  1. REMICADE [Suspect]
     Indication: CROHN^S DISEASE
     Route: 042
     Dates: start: 20070115
  2. ASACOL [Concomitant]
     Route: 065
  3. IMURAN [Concomitant]
     Route: 065
  4. CIPRO [Concomitant]
     Route: 065
  5. LIPITOR [Concomitant]
     Route: 065
  6. SOLU-CORTEF [Concomitant]
     Indication: PREMEDICATION
     Route: 065
  7. AERIUS [Concomitant]
     Indication: PREMEDICATION
     Route: 065

REACTIONS (3)
  - Intestinal obstruction [Recovered/Resolved]
  - Nephrolithiasis [Recovered/Resolved]
  - Epididymitis [Recovered/Resolved]
